FAERS Safety Report 5210936-X (Version None)
Quarter: 2007Q1

REPORT INFORMATION
  Report Type: 
  Country: None (occurrence: None)
  Receive Date: 20070117
  Receipt Date: 20070108
  Transmission Date: 20070707
  Serious: Yes (Death)
  Sender: FDA-Public Use
  Company Number: US-ABBOTT-06P-163-0354005-00

PATIENT
  Sex: Male
  Weight: 95.5 kg

DRUGS (1)
  1. HUMIRA [Suspect]
     Indication: OSTEOARTHRITIS
     Dates: end: 20050201

REACTIONS (4)
  - ANXIETY [None]
  - CENTRAL NERVOUS SYSTEM LYMPHOMA [None]
  - METASTASES TO LIVER [None]
  - OEDEMA PERIPHERAL [None]
